FAERS Safety Report 12109240 (Version 1)
Quarter: 2016Q1

REPORT INFORMATION
  Report Type: Spontaneous
  Country: US (occurrence: US)
  Receive Date: 20160224
  Receipt Date: 20160224
  Transmission Date: 20160526
  Serious: No
  Sender: FDA-Public Use
  Company Number: US-PFIZER INC-2016078455

PATIENT
  Age: 57 Year
  Sex: Female
  Weight: 86.18 kg

DRUGS (5)
  1. LYRICA [Suspect]
     Active Substance: PREGABALIN
     Indication: PRURITUS
     Dosage: 300 MG, ONE CAPSULE, 1X/DAY
     Route: 048
     Dates: start: 201601
  2. LEVOTHYROXIN [Concomitant]
     Active Substance: LEVOTHYROXINE
     Indication: THYROID DISORDER
     Dosage: 75MCG ONE TABLET BY MOUTH EACH MORNING
     Route: 048
  3. KEPPRA [Concomitant]
     Active Substance: LEVETIRACETAM
     Indication: SEIZURE
     Dosage: 500MG ONE TABLET BY MOUTH IN THE MORNING, AND TWO TABLETS BY MOUTH IN THE EVENING
     Route: 048
     Dates: start: 2015
  4. LYRICA [Suspect]
     Active Substance: PREGABALIN
     Indication: BACK PAIN
     Dosage: 300 MG, 2X/DAY
     Route: 048
  5. ATORVASTATIN [Concomitant]
     Active Substance: ATORVASTATIN
     Indication: BLOOD CHOLESTEROL INCREASED
     Dosage: 20MG ONE TABLET BY MOUTH EVERY MONDAY, WEDNESDAY, AND FRIDAY
     Route: 048

REACTIONS (2)
  - Intentional product misuse [Unknown]
  - Pruritus [Unknown]

NARRATIVE: CASE EVENT DATE: 201601
